FAERS Safety Report 12973784 (Version 2)
Quarter: 2017Q2

REPORT INFORMATION
  Report Type: Spontaneous
  Country: US (occurrence: US)
  Receive Date: 20161124
  Receipt Date: 20170525
  Transmission Date: 20170830
  Serious: Yes (Hospitalization)
  Sender: FDA-Public Use
  Company Number: US-ASTRAZENECA-2016SF23165

PATIENT
  Age: 73 Year
  Sex: Female
  Weight: 100.2 kg

DRUGS (1)
  1. SYMBICORT [Suspect]
     Active Substance: BUDESONIDE\FORMOTEROL FUMARATE DIHYDRATE
     Indication: ASTHMA
     Dosage: 160/4.5 UG TWO PUFFS IN THE MORNING AND TWO PUFFS AT NIGHT, FOR THE PAST 10 TO 12 YEARS
     Route: 055

REACTIONS (7)
  - Body height decreased [Unknown]
  - Renal disorder [Recovered/Resolved]
  - Visual impairment [Not Recovered/Not Resolved]
  - Gait disturbance [Not Recovered/Not Resolved]
  - Dyspnoea [Recovered/Resolved]
  - Product odour abnormal [Unknown]
  - Urinary retention [Unknown]

NARRATIVE: CASE EVENT DATE: 2016
